FAERS Safety Report 9810714 (Version 2)
Quarter: 2015Q3

REPORT INFORMATION
  Report Type: Spontaneous
  Country: US (occurrence: US)
  Receive Date: 20140110
  Receipt Date: 20150716
  Transmission Date: 20151125
  Serious: Yes (Death, Other)
  Sender: FDA-Public Use
  Company Number: US-SANOFI-AVENTIS-2013SA086575

PATIENT
  Age: 55 Year
  Sex: Female

DRUGS (5)
  1. PLAVIX [Suspect]
     Active Substance: CLOPIDOGREL BISULFATE
     Indication: STENT PLACEMENT
     Route: 048
     Dates: start: 200405, end: 200704
  2. ASPIRIN. [Concomitant]
     Active Substance: ASPIRIN
     Dosage: 5 GR (325 MG)
     Route: 048
     Dates: start: 20040510, end: 200704
  3. WARFARIN [Concomitant]
     Active Substance: WARFARIN
     Dates: start: 200605, end: 200606
  4. WARFARIN [Concomitant]
     Active Substance: WARFARIN
     Dates: start: 200511, end: 2006
  5. PLAVIX [Suspect]
     Active Substance: CLOPIDOGREL BISULFATE
     Indication: MYOCARDIAL INFARCTION
     Route: 048
     Dates: start: 200405, end: 200704

REACTIONS (7)
  - Myocardial infarction [Unknown]
  - Haemorrhage [Unknown]
  - Haemoptysis [Unknown]
  - Internal haemorrhage [Unknown]
  - Gastrointestinal haemorrhage [Unknown]
  - Vascular stent occlusion [Unknown]
  - Death [Fatal]

NARRATIVE: CASE EVENT DATE: 200405
